FAERS Safety Report 10265084 (Version 1)
Quarter: 2014Q2

REPORT INFORMATION
  Report Type: Spontaneous
  Country: GB (occurrence: GB)
  Receive Date: 20140627
  Receipt Date: 20140627
  Transmission Date: 20141212
  Serious: Yes (Hospitalization)
  Sender: FDA-Public Use
  Company Number: PHHY2014GB076601

PATIENT
  Sex: Female

DRUGS (2)
  1. RAMIPRIL [Suspect]
     Dosage: 2.5 MG, UNK
  2. VALSARTAN [Concomitant]
     Dosage: 320 MG, UNK

REACTIONS (7)
  - Swollen tongue [Unknown]
  - Mouth swelling [Unknown]
  - Ear discomfort [Unknown]
  - Nasal dryness [Unknown]
  - Malaise [Unknown]
  - Alopecia [Recovered/Resolved]
  - Chest pain [Unknown]
